FAERS Safety Report 9796709 (Version 2)
Quarter: 2014Q1

REPORT INFORMATION
  Report Type: Report from Study
  Country: US (occurrence: US)
  Receive Date: 20140103
  Receipt Date: 20140109
  Transmission Date: 20141002
  Serious: Yes (Death)
  Sender: FDA-Public Use
  Company Number: US-TAKEDA-2014TUS000017

PATIENT
  Sex: 0

DRUGS (1)
  1. COLCRYS [Suspect]
     Dosage: 0.6 MG, Q8HR
     Dates: start: 20130321

REACTIONS (1)
  - Gun shot wound [Fatal]
